FAERS Safety Report 23925548 (Version 1)
Quarter: 2024Q2

REPORT INFORMATION
  Report Type: Spontaneous
  Country: IT (occurrence: IT)
  Receive Date: 20240531
  Receipt Date: 20240531
  Transmission Date: 20240716
  Serious: Yes (Other)
  Sender: FDA-Public Use
  Company Number: IT-GLAXOSMITHKLINE-IT2024EME067668

PATIENT

DRUGS (1)
  1. DOSTARLIMAB [Suspect]
     Active Substance: DOSTARLIMAB
     Indication: Endometrial cancer
     Dosage: 500 MG, Q3W

REACTIONS (4)
  - Immunotoxicity [Unknown]
  - Cholinergic syndrome [Unknown]
  - Myasthenia gravis [Unknown]
  - Hyperthyroidism [Unknown]
